FAERS Safety Report 10655541 (Version 2)
Quarter: 2014Q4

REPORT INFORMATION
  Report Type: Spontaneous
  Country: CN (occurrence: CN)
  Receive Date: 20141216
  Receipt Date: 20141216
  Transmission Date: 20150529
  Serious: Yes (Other)
  Sender: FDA-Public Use
  Company Number: CN-ELI_LILLY_AND_COMPANY-CN201412000410

PATIENT
  Sex: Female

DRUGS (3)
  1. HUMALOG [Suspect]
     Active Substance: INSULIN LISPRO
     Dosage: 15 DF, EACH EVENING
     Route: 058
     Dates: start: 20141108
  2. HUMALOG [Suspect]
     Active Substance: INSULIN LISPRO
     Indication: DIABETES MELLITUS
     Dosage: 14 DF, EACH MORNING
     Route: 058
     Dates: start: 20141101
  3. HUMALOG [Suspect]
     Active Substance: INSULIN LISPRO
     Dosage: 16 DF, EACH EVENING
     Route: 058
     Dates: start: 20141101

REACTIONS (1)
  - Hepatitis B [Not Recovered/Not Resolved]

NARRATIVE: CASE EVENT DATE: 20141120
